FAERS Safety Report 18155901 (Version 1)
Quarter: 2020Q3

REPORT INFORMATION
  Report Type: Spontaneous
  Country: US (occurrence: US)
  Receive Date: 20200814
  Receipt Date: 20200814
  Transmission Date: 20201103
  Serious: No
  Sender: FDA-Public Use
  Company Number: None

PATIENT
  Age: 5 Year
  Sex: Female
  Weight: 18 kg

DRUGS (1)
  1. BENZALKONIUM CHLORIDE 0.1% [Suspect]
     Active Substance: BENZALKONIUM CHLORIDE
     Indication: SKIN ABRASION
     Dosage: ?          OTHER STRENGTH:1%;QUANTITY:1 ONE BANDAGE;OTHER FREQUENCY:AS NEEDED;?
     Route: 062
     Dates: start: 20200813

REACTIONS (4)
  - Application site burn [None]
  - Product complaint [None]
  - Chemical burn [None]
  - Application site vesicles [None]

NARRATIVE: CASE EVENT DATE: 20200813
